FAERS Safety Report 13342350 (Version 1)
Quarter: 2017Q1

REPORT INFORMATION
  Report Type: Spontaneous
  Country: US (occurrence: US)
  Receive Date: 20170316
  Receipt Date: 20170316
  Transmission Date: 20170428
  Serious: No
  Sender: FDA-Public Use
  Company Number: US-BAYER-2017-050448

PATIENT
  Sex: Female

DRUGS (1)
  1. MIRALAX [Suspect]
     Active Substance: POLYETHYLENE GLYCOL 3350
     Indication: GASTROINTESTINAL DISORDER
     Dosage: ONE A DAY FOR 5-6 DAYS
     Route: 048
     Dates: start: 201703

REACTIONS (2)
  - Patient dissatisfaction with treatment [None]
  - Drug effect incomplete [Unknown]

NARRATIVE: CASE EVENT DATE: 201703
